FAERS Safety Report 7363222-6 (Version None)
Quarter: 2011Q1

REPORT INFORMATION
  Report Type: 
  Country: None (occurrence: None)
  Receive Date: 20110321
  Receipt Date: 20110311
  Transmission Date: 20110831
  Serious: Yes (Hospitalization, Other)
  Sender: FDA-Public Use
  Company Number: US-ASTELLAS-2011US000593

PATIENT
  Sex: Female
  Weight: 59 kg

DRUGS (31)
  1. PROGRAF [Suspect]
     Dosage: 3 MG AM, 2 MG PM, UID/QD
     Route: 048
     Dates: end: 20110118
  2. OMEPRAZOLE [Concomitant]
     Indication: PRODUCT USED FOR UNKNOWN INDICATION
     Dosage: 20 MG, QHS
     Route: 048
  3. PLAVIX [Concomitant]
     Indication: PRODUCT USED FOR UNKNOWN INDICATION
     Dosage: 75 MG, UID/QD
     Route: 048
  4. PNEUMOCOCCAL VACCINE [Concomitant]
     Indication: IMMUNISATION
     Dosage: UNK
     Route: 065
     Dates: start: 20090301, end: 20090301
  5. PROGRAF [Suspect]
     Dosage: 1.5 MG, Q12 HOURS
     Route: 048
     Dates: start: 20091103
  6. ZITHROMAX [Concomitant]
     Indication: PRODUCT USED FOR UNKNOWN INDICATION
     Dosage: 250 MG, UID/QD
     Route: 048
  7. LASIX [Concomitant]
     Indication: PRODUCT USED FOR UNKNOWN INDICATION
     Dosage: 20 MG, BID
     Route: 048
     Dates: start: 20091103
  8. PROGRAF [Suspect]
     Indication: LUNG TRANSPLANT
     Dosage: 2.5 MG, BID
     Route: 048
     Dates: start: 20081118
  9. SIMVASTATIN [Concomitant]
     Indication: PRODUCT USED FOR UNKNOWN INDICATION
     Dosage: 40 MG, UID/QD
     Route: 048
  10. HYDROCORTISONE [Concomitant]
     Indication: PRODUCT USED FOR UNKNOWN INDICATION
     Dosage: 1 %, TO NECK AND AFFECTED AREAS
     Route: 061
     Dates: start: 20091103
  11. MAGNESIUM OXIDE [Concomitant]
     Indication: PRODUCT USED FOR UNKNOWN INDICATION
     Dosage: 400 MG, BID
     Route: 048
  12. NEURONTIN [Concomitant]
     Indication: PRODUCT USED FOR UNKNOWN INDICATION
     Dosage: 100 MG, BID
     Route: 048
  13. RAPAMUNE [Concomitant]
     Indication: PRODUCT USED FOR UNKNOWN INDICATION
     Dosage: 2 MG, UID/QD
     Route: 048
  14. LANTUS [Concomitant]
     Indication: PRODUCT USED FOR UNKNOWN INDICATION
     Dosage: 12 U, UID/QD EVERY MORNING
     Route: 058
     Dates: start: 20091103
  15. OSCAL 500+D [Concomitant]
     Indication: PRODUCT USED FOR UNKNOWN INDICATION
     Dosage: 1 500-200 MG, TID
     Route: 048
  16. MULTIVITAMINS, COMBINATIONS [Concomitant]
     Indication: PRODUCT USED FOR UNKNOWN INDICATION
     Dosage: 1 DF, UID/QD
     Route: 048
  17. ISOSORBIDE MONONITRATE [Concomitant]
     Indication: PRODUCT USED FOR UNKNOWN INDICATION
     Dosage: 60 MG, UID/QD
     Route: 048
  18. METOPROLOL [Concomitant]
     Indication: PRODUCT USED FOR UNKNOWN INDICATION
     Dosage: 75 MG, BID
     Route: 048
  19. FLORINEF [Concomitant]
     Indication: PRODUCT USED FOR UNKNOWN INDICATION
     Dosage: 0.1 MG, UID/QD
     Route: 048
  20. FOSAMAX [Concomitant]
     Indication: PRODUCT USED FOR UNKNOWN INDICATION
     Dosage: 70 MG, WEEKLY
     Route: 048
  21. ASPIRIN [Concomitant]
     Indication: PRODUCT USED FOR UNKNOWN INDICATION
     Dosage: 81 MG, UID/QD
     Route: 048
  22. K-DUR [Concomitant]
     Indication: PRODUCT USED FOR UNKNOWN INDICATION
     Dosage: 10 MEQ, UID/QD
     Route: 048
     Dates: start: 20091103
  23. PREDNISONE [Concomitant]
     Indication: PRODUCT USED FOR UNKNOWN INDICATION
     Dosage: 5 MG, UID/QD
     Route: 048
  24. NORVASC [Concomitant]
     Indication: PRODUCT USED FOR UNKNOWN INDICATION
     Dosage: 5 MG, UID/QD
     Route: 048
  25. IMURAN [Concomitant]
     Indication: PRODUCT USED FOR UNKNOWN INDICATION
     Dosage: 50 MG, UID/QD
     Route: 048
  26. PROGRAF [Suspect]
     Dosage: 1.5 MG AM, 1 MG PM, UID/QD
     Route: 048
     Dates: start: 20110118
  27. FISH OIL [Concomitant]
     Indication: PRODUCT USED FOR UNKNOWN INDICATION
     Dosage: 1200 MG, UID/QD
     Route: 048
  28. VALCYTE [Concomitant]
     Indication: PRODUCT USED FOR UNKNOWN INDICATION
     Dosage: 450 MG, WEEKLY, EVERY MONDAY
     Route: 048
     Dates: start: 20091103
  29. PROZAC [Concomitant]
     Indication: PRODUCT USED FOR UNKNOWN INDICATION
     Dosage: 40 MG, UID/QD
     Route: 048
     Dates: start: 20091103
  30. HYDRALAZINE [Concomitant]
     Indication: PRODUCT USED FOR UNKNOWN INDICATION
     Dosage: 25 MG, Q8 HOURS
     Route: 048
  31. BACTRIM DS [Concomitant]
     Indication: PRODUCT USED FOR UNKNOWN INDICATION
     Dosage: 800-160 MG EVERY M, W, F
     Route: 048

REACTIONS (24)
  - RENAL FAILURE CHRONIC [None]
  - RHINITIS ALLERGIC [None]
  - POSTOPERATIVE HERNIA [None]
  - OBLITERATIVE BRONCHIOLITIS [None]
  - MYOCARDIAL INFARCTION [None]
  - SQUAMOUS CELL CARCINOMA OF SKIN [None]
  - CORONARY ARTERY DISEASE [None]
  - HOSPITALISATION [None]
  - PNEUMONIA [None]
  - RENAL FAILURE [None]
  - COUGH [None]
  - HYPERTENSION [None]
  - OFF LABEL USE [None]
  - OESOPHAGITIS [None]
  - LIP ULCERATION [None]
  - BLOOD CREATININE INCREASED [None]
  - LUNG TRANSPLANT REJECTION [None]
  - PLEURAL EFFUSION [None]
  - ABDOMINAL HERNIA [None]
  - BACTERIAL SEPSIS [None]
  - HIATUS HERNIA [None]
  - GASTROOESOPHAGEAL REFLUX DISEASE [None]
  - NEUROPATHY PERIPHERAL [None]
  - CONFUSIONAL STATE [None]
